FAERS Safety Report 12532689 (Version 15)
Quarter: 2018Q2

REPORT INFORMATION
  Report Type: Spontaneous
  Country: US (occurrence: US)
  Receive Date: 20160706
  Receipt Date: 20180423
  Transmission Date: 20180711
  Serious: Yes (Hospitalization, Other)
  Sender: FDA-Public Use
  Company Number: US-ACTELION-A-NJ2016-138397

PATIENT
  Age: 52 Year
  Sex: Female
  Weight: 68.27 kg

DRUGS (4)
  1. VELETRI [Suspect]
     Active Substance: EPOPROSTENOL
     Dosage: 45 NG/KG, PER MIN
     Route: 042
  2. TORSEMIDE. [Concomitant]
     Active Substance: TORSEMIDE
  3. LASIX [Concomitant]
     Active Substance: FUROSEMIDE
  4. VELETRI [Suspect]
     Active Substance: EPOPROSTENOL
     Indication: PULMONARY ARTERIAL HYPERTENSION
     Dosage: 5 NG/KG, PER MIN
     Route: 042
     Dates: start: 20160408

REACTIONS (26)
  - Hyperhidrosis [Unknown]
  - Device breakage [Unknown]
  - Weight decreased [Unknown]
  - Thyroid disorder [Unknown]
  - Headache [Unknown]
  - Pain in jaw [Unknown]
  - Back pain [Unknown]
  - Dyspnoea [Unknown]
  - Central venous catheterisation [Unknown]
  - Migraine [Unknown]
  - Vomiting [Recovered/Resolved]
  - Oedema peripheral [Unknown]
  - Haematemesis [Unknown]
  - Memory impairment [Unknown]
  - Cardiac failure congestive [Unknown]
  - Thrombosis in device [Unknown]
  - Diarrhoea [Unknown]
  - Nausea [Unknown]
  - Malaise [Unknown]
  - Tremor [Unknown]
  - Pain [Unknown]
  - Abdominal distension [Unknown]
  - Gastric varices haemorrhage [Unknown]
  - Epistaxis [Unknown]
  - Gastrointestinal disorder [Unknown]
  - Fatigue [Unknown]

NARRATIVE: CASE EVENT DATE: 201607
